FAERS Safety Report 6130409-X (Version None)
Quarter: 2009Q1

REPORT INFORMATION
  Report Type: 
  Country: None (occurrence: None)
  Receive Date: 20090324
  Receipt Date: 20090320
  Transmission Date: 20090719
  Serious: Yes (Death, Other)
  Sender: FDA-Public Use
  Company Number: PHHY2009BR10587

PATIENT
  Age: 77 Year
  Sex: Female

DRUGS (9)
  1. FORASEQ [Suspect]
     Indication: BRONCHITIS
     Dosage: UNK
  2. FORASEQ [Suspect]
     Indication: COUGH
     Dosage: UNK
  3. DIGOXIN [Concomitant]
     Indication: CARDIAC DISORDER
     Dosage: 25 MG, BID
     Route: 048
  4. BISOPROLOL FUMARATE [Concomitant]
     Indication: CARDIAC DISORDER
     Dosage: 1.25MG, EVERY OTHER DAY
     Route: 048
  5. SUSTRATE [Concomitant]
     Indication: CARDIAC DISORDER
     Dosage: 25 MG, QD
     Route: 048
  6. LASIX [Concomitant]
     Indication: CARDIAC DISORDER
     Dosage: UNK
     Route: 048
  7. MAREVAN [Concomitant]
  8. ATACAND [Concomitant]
  9. ALDACTONE [Concomitant]

REACTIONS (7)
  - ATRIOVENTRICULAR BLOCK [None]
  - BLOOD PRESSURE DECREASED [None]
  - CARDIAC ARREST [None]
  - COUGH [None]
  - HEART RATE DECREASED [None]
  - HERPES ZOSTER [None]
  - WHEEZING [None]
